FAERS Safety Report 9815436 (Version 1)
Quarter: 2014Q1

REPORT INFORMATION
  Report Type: Spontaneous
  Country: FR (occurrence: FR)
  Receive Date: 20140114
  Receipt Date: 20140114
  Transmission Date: 20141002
  Serious: Yes (Other)
  Sender: FDA-Public Use
  Company Number: FR-ROCHE-1332754

PATIENT
  Sex: Female

DRUGS (1)
  1. VEMURAFENIB [Suspect]
     Indication: ANAPLASTIC ASTROCYTOMA
     Dosage: (375 MG/M2 BID)
     Route: 065

REACTIONS (1)
  - Haemorrhage intracranial [Unknown]
